FAERS Safety Report 4545354-0 (Version None)
Quarter: 2004Q4

REPORT INFORMATION
  Report Type: 
  Country: None (occurrence: None)
  Receive Date: 20041230
  Receipt Date: 20041214
  Transmission Date: 20050328
  Serious: Yes (Other)
  Sender: FDA-Public Use
  Company Number: 2004-BP-13001YA(1)

PATIENT
  Age: 75 Year
  Sex: Male

DRUGS (8)
  1. HARNAL (TAMSULOSIN) [Suspect]
     Indication: BENIGN PROSTATIC HYPERPLASIA
     Dosage: 0.1 MG(0.1 MG AM); PO
     Route: 048
     Dates: start: 20041105, end: 20041119
  2. ETIZOLAM (ETIZOLAM) [Concomitant]
  3. PREDNISOLONE [Concomitant]
  4. REBAMIPIDE (REBAMIPIDE) [Concomitant]
  5. FAMOTIDINE [Concomitant]
  6. CALCITRIOL [Concomitant]
  7. MINOCYCLINE HYDROCHLORIDE [Concomitant]
  8. PRAVASTATIN SODIUM [Concomitant]

REACTIONS (7)
  - BLOOD PRESSURE SYSTOLIC INCREASED [None]
  - DIZZINESS [None]
  - HYPOTENSION [None]
  - LOSS OF CONSCIOUSNESS [None]
  - NAUSEA [None]
  - PALLOR [None]
  - REFUSAL OF TREATMENT BY PATIENT [None]
